FAERS Safety Report 22113926 (Version 1)
Quarter: 2023Q1

REPORT INFORMATION
  Report Type: Spontaneous
  Country: US (occurrence: US)
  Receive Date: 20230320
  Receipt Date: 20230320
  Transmission Date: 20230418
  Serious: No
  Sender: FDA-Public Use
  Company Number: US-002147023-NVSC2023US061387

PATIENT
  Sex: Female

DRUGS (2)
  1. XIIDRA [Suspect]
     Active Substance: LIFITEGRAST
     Indication: Product used for unknown indication
     Dosage: UNK
     Route: 065
  2. TIMOLOL MALEATE [Concomitant]
     Active Substance: TIMOLOL MALEATE
     Indication: Intraocular pressure test
     Dosage: UNK
     Route: 065

REACTIONS (5)
  - Product delivery mechanism issue [Unknown]
  - Product dispensing issue [Unknown]
  - Product dose omission issue [Unknown]
  - Product use complaint [Unknown]
  - Product container issue [Unknown]
